FAERS Safety Report 8790073 (Version 1)
Quarter: 2012Q4

REPORT INFORMATION
  Report Type: 
  Country: US (occurrence: US)
  Receive Date: 20120917
  Receipt Date: 20120917
  Transmission Date: 20130627
  Serious: Yes (Hospitalization, Other)
  Sender: FDA-Public Use
  Company Number: US-PFIZER INC-2012228505

PATIENT
  Age: 78 Year
  Sex: Female
  Weight: 59.86 kg

DRUGS (10)
  1. PROCARDIA XL [Suspect]
     Indication: HYPERTENSION
     Dosage: 90 mg, 1x/day
     Route: 048
     Dates: start: 2003
  2. PROCARDIA XL [Suspect]
     Dosage: 90 mg, 1x/day
     Route: 048
     Dates: start: 2012
  3. KEPPRA [Concomitant]
     Dosage: 500 mg, UNK
  4. HYDROCHLOROTHIAZIDE [Concomitant]
     Dosage: 25 mg, 1x/day
  5. ASPIRIN [Concomitant]
     Dosage: 325 mg, 1x/day
  6. LOPRESSOR [Concomitant]
     Dosage: 12.5 mg, 2x/day
  7. AMARYL [Concomitant]
     Indication: TYPE 2 DIABETES MELLITUS
     Dosage: UNK
  8. INSULIN [Concomitant]
     Indication: TYPE 2 DIABETES MELLITUS
     Dosage: UNK
  9. NITROGLYCERIN [Concomitant]
     Dosage: 0.4 mg, 2x/day
  10. PLAVIX [Concomitant]
     Dosage: 75 mg, UNK

REACTIONS (4)
  - Blood pressure increased [Unknown]
  - Carotid artery occlusion [Unknown]
  - Heart rate irregular [Unknown]
  - Blood pressure inadequately controlled [Unknown]
